FAERS Safety Report 6201625-3 (Version None)
Quarter: 2009Q2

REPORT INFORMATION
  Report Type: 
  Country: None (occurrence: None)
  Receive Date: 20090519
  Receipt Date: 20090505
  Transmission Date: 20091009
  Serious: Yes (Other)
  Sender: FDA-Public Use
  Company Number: IPS_01541_2009

PATIENT
  Sex: Female

DRUGS (3)
  1. APO-GO (APO-GO - APOMORPHINE HYDROCHLORIDE) (NOT SPECIFIED) [Suspect]
     Indication: ON AND OFF PHENOMENON
     Dosage: 50 MG, FREQUENCY UNKNOWN, FOR 2 MONTHS SUBCUTANEOUS
     Route: 058
     Dates: start: 20081001, end: 20081201
  2. STALEVO 100 [Concomitant]
  3. ROTIGOTINE [Concomitant]

REACTIONS (3)
  - EOSINOPHILIA [None]
  - HYPOTENSION [None]
  - RASH [None]
